FAERS Safety Report 8051790-0 (Version None)
Quarter: 2012Q1

REPORT INFORMATION
  Report Type: 
  Country: None (occurrence: None)
  Receive Date: 20120118
  Receipt Date: 20120109
  Transmission Date: 20120608
  Serious: No
  Sender: FDA-Public Use
  Company Number: US-BIOGENIDEC-2012BI001681

PATIENT
  Sex: Female

DRUGS (4)
  1. TYSABRI [Suspect]
     Indication: CROHN'S DISEASE
     Route: 042
     Dates: start: 20110908, end: 20111026
  2. ANTIBIOTICS (NOS) [Concomitant]
     Indication: CROHN'S DISEASE
  3. THALIDOMIDE [Concomitant]
     Indication: CROHN'S DISEASE
  4. ADALIMUMAB [Concomitant]
     Indication: CROHN'S DISEASE

REACTIONS (1)
  - DRUG INEFFECTIVE [None]
